FAERS Safety Report 16022336 (Version 2)
Quarter: 2019Q2

REPORT INFORMATION
  Report Type: Report from Study
  Country: IT (occurrence: IT)
  Receive Date: 20190301
  Receipt Date: 20190512
  Transmission Date: 20190711
  Serious: Yes (Other)
  Sender: FDA-Public Use
  Company Number: PHHY2019IT046161

PATIENT
  Sex: Male

DRUGS (1)
  1. GILENYA [Suspect]
     Active Substance: FINGOLIMOD HYDROCHLORIDE
     Indication: FOETAL EXPOSURE DURING PREGNANCY
     Dosage: MATERNAL DOSE: 0.5 MG, QD
     Route: 064

REACTIONS (2)
  - Foetal exposure during pregnancy [Unknown]
  - Premature baby [Unknown]
